FAERS Safety Report 5448746-0 (Version None)
Quarter: 2007Q3

REPORT INFORMATION
  Report Type: 
  Country: None (occurrence: None)
  Receive Date: 20070911
  Receipt Date: 20070905
  Transmission Date: 20080115
  Serious: Yes (Other)
  Sender: FDA-Public Use
  Company Number: B0485970A

PATIENT
  Sex: Male

DRUGS (1)
  1. AVANDAMET [Suspect]
     Dosage: 2TAB PER DAY
     Route: 048
     Dates: start: 20061129

REACTIONS (4)
  - GASTRIC ULCER [None]
  - GASTRITIS [None]
  - HAEMATOCHEZIA [None]
  - HYPOCHROMIC ANAEMIA [None]
